FAERS Safety Report 8419853-5 (Version None)
Quarter: 2012Q2

REPORT INFORMATION
  Report Type: 
  Country: None (occurrence: None)
  Receive Date: 20120607
  Receipt Date: 20111102
  Transmission Date: 20120825
  Serious: No
  Sender: FDA-Public Use
  Company Number: PHHO2010US08764

PATIENT
  Sex: Female
  Weight: 85 kg

DRUGS (10)
  1. SPRYCEL [Concomitant]
     Indication: CHRONIC MYELOID LEUKAEMIA
     Dosage: 100 MG/DAY
     Route: 048
     Dates: start: 20080926, end: 20090225
  2. LEVOFLOXACIN [Concomitant]
     Indication: UROSEPSIS
     Dosage: 750 MG/DAY
     Route: 048
     Dates: start: 20091002, end: 20091009
  3. ALLOPURINOL [Concomitant]
     Dosage: 300 MG,
     Route: 048
     Dates: start: 20080925, end: 20090302
  4. VICODIN [Concomitant]
     Dosage: UNK UKN, UNK
     Route: 048
     Dates: start: 20080925, end: 20090302
  5. SPRYCEL [Concomitant]
     Dosage: 50 MG/DAY
     Route: 048
     Dates: start: 20090225, end: 20090924
  6. NILOTINIB [Suspect]
     Indication: CHRONIC MYELOID LEUKAEMIA
     Dosage: 200 MG/DAY
     Route: 048
     Dates: start: 20090924, end: 20100603
  7. NO TREATMENT RECEIVED [Suspect]
     Indication: CHRONIC MYELOID LEUKAEMIA
     Dosage: 400 MG DAILY
     Route: 048
     Dates: start: 20080919, end: 20090925
  8. CEFAZOLIN [Concomitant]
     Dosage: UNK
     Route: 048
     Dates: start: 20080927, end: 20080929
  9. IMIPENEM [Concomitant]
     Dosage: UNK
     Route: 048
     Dates: start: 20080927, end: 20081002
  10. CEFTAZIDIME [Concomitant]
     Dosage: UNK
     Route: 048
     Dates: start: 20080927, end: 20080929

REACTIONS (1)
  - MATERNAL EXPOSURE DURING PREGNANCY [None]
